FAERS Safety Report 6440570-5 (Version None)
Quarter: 2009Q4

REPORT INFORMATION
  Report Type: 
  Country: None (occurrence: None)
  Receive Date: 20091113
  Receipt Date: 20091109
  Transmission Date: 20100525
  Serious: Yes (Other)
  Sender: FDA-Public Use
  Company Number: US-ELI_LILLY_AND_COMPANY-US200911002934

PATIENT
  Sex: Male

DRUGS (3)
  1. HUMULIN N [Suspect]
  2. HUMAN INSULIN (RDNA ORIGIN) [Suspect]
  3. METFORMIN HCL [Concomitant]

REACTIONS (2)
  - BRAIN OPERATION [None]
  - MEMORY IMPAIRMENT [None]
